FAERS Safety Report 14405943 (Version 4)
Quarter: 2019Q3

REPORT INFORMATION
  Report Type: Spontaneous
  Country: US (occurrence: US)
  Receive Date: 20180118
  Receipt Date: 20190827
  Transmission Date: 20191004
  Serious: No
  Sender: FDA-Public Use
  Company Number: US-JNJFOC-20171231614

PATIENT
  Sex: Male
  Weight: 72.28 kg

DRUGS (1)
  1. RISPERDAL [Suspect]
     Active Substance: RISPERIDONE
     Indication: BIPOLAR DISORDER
     Dosage: 1MG-6 MG
     Route: 048
     Dates: start: 19960530, end: 19960926

REACTIONS (3)
  - Emotional disorder [Unknown]
  - Drug ineffective [Unknown]
  - Gynaecomastia [Unknown]

NARRATIVE: CASE EVENT DATE: 1996
